FAERS Safety Report 5446826-7 (Version None)
Quarter: 2007Q3

REPORT INFORMATION
  Report Type: 
  Country: None (occurrence: None)
  Receive Date: 20070907
  Receipt Date: 20070829
  Transmission Date: 20080115
  Serious: Yes (Hospitalization, Other)
  Sender: FDA-Public Use
  Company Number: US-ABBOTT-07P-163-0415200-00

PATIENT
  Sex: Female

DRUGS (9)
  1. HUMIRA [Suspect]
     Indication: RHEUMATOID ARTHRITIS
     Dates: start: 20070814
  2. HUMIRA [Suspect]
     Dates: start: 20050101
  3. HUMIRA [Suspect]
  4. HYDROXYCHLOROQUINE PHOSPHATE [Concomitant]
     Indication: DRUG USE FOR UNKNOWN INDICATION
  5. SERETIDE [Concomitant]
     Indication: ASTHMA
  6. SALBUTAMOL [Concomitant]
     Indication: ASTHMA
  7. OXYGEN [Concomitant]
     Indication: DRUG USE FOR UNKNOWN INDICATION
  8. TYLOX [Concomitant]
     Indication: PAIN
  9. UNREPORTED MEDICATION [Concomitant]
     Indication: SEDATIVE THERAPY

REACTIONS (4)
  - ABDOMINAL PAIN [None]
  - ANOREXIA [None]
  - GALLBLADDER NECROSIS [None]
  - ULTRASOUND SCAN ABNORMAL [None]
